FAERS Safety Report 26058297 (Version 1)
Quarter: 2025Q4

REPORT INFORMATION
  Report Type: Report from Study
  Country: CA (occurrence: CA)
  Receive Date: 20251118
  Receipt Date: 20251118
  Transmission Date: 20260118
  Serious: Yes (Hospitalization)
  Sender: ABBVIE
  Company Number: CA-ABBVIE-6523257

PATIENT
  Age: 38 Year
  Sex: Female

DRUGS (1)
  1. QULIPTA [Suspect]
     Active Substance: ATOGEPANT
     Indication: Migraine
     Route: 048
     Dates: start: 20250713

REACTIONS (5)
  - Cerebral disorder [Unknown]
  - Hypertension [Unknown]
  - Fall [Unknown]
  - Malaise [Unknown]
  - Wound [Unknown]

NARRATIVE: CASE EVENT DATE: 20251023
